FAERS Safety Report 9951957 (Version 1)
Quarter: 2014Q1

REPORT INFORMATION
  Report Type: Spontaneous
  Country: US (occurrence: US)
  Receive Date: 20140304
  Receipt Date: 20140304
  Transmission Date: 20141002
  Serious: No
  Sender: FDA-Public Use
  Company Number: US-ABBVIE-13P-163-1075765-00

PATIENT
  Age: 60 Year
  Sex: Female

DRUGS (8)
  1. HUMIRA [Suspect]
     Indication: PSORIATIC ARTHROPATHY
     Dates: start: 20130409
  2. HUMIRA [Suspect]
     Indication: PSORIASIS
  3. GLYBURIDE [Concomitant]
     Indication: DIABETES MELLITUS
  4. METFORMIN [Concomitant]
     Indication: DIABETES MELLITUS
  5. LISINOPRIL [Concomitant]
     Indication: HYPERTENSION
  6. VITAMIN D [Concomitant]
     Indication: VITAMIN SUPPLEMENTATION
  7. LORTAB [Concomitant]
     Indication: PAIN
  8. MOTRIN [Concomitant]
     Indication: PAIN

REACTIONS (1)
  - Blood glucose increased [Recovered/Resolved]
